FAERS Safety Report 7550251-2 (Version None)
Quarter: 2011Q2

REPORT INFORMATION
  Report Type: 
  Country: None (occurrence: None)
  Receive Date: 20110615
  Receipt Date: 20110602
  Transmission Date: 20111010
  Serious: Yes (Other)
  Sender: FDA-Public Use
  Company Number: US-CELGENEUS-163-21660-11061035

PATIENT

DRUGS (3)
  1. ABRAXANE [Suspect]
     Dosage: 40 MG/M^2 - 60 MG/M^2
     Route: 065
  2. ABRAXANE [Suspect]
     Dosage: 100 MILLIGRAM/SQ. METER
     Route: 065
  3. CARBOPLATIN [Suspect]
     Route: 065

REACTIONS (12)
  - OESOPHAGITIS [None]
  - RADIATION SKIN INJURY [None]
  - DERMATITIS [None]
  - ANAEMIA [None]
  - MUCOSAL INFLAMMATION [None]
  - DEHYDRATION [None]
  - FATIGUE [None]
  - NAUSEA [None]
  - THROMBOCYTOPENIA [None]
  - NEUTROPENIA [None]
  - HYPOXIA [None]
  - DYSPHAGIA [None]
